FAERS Safety Report 6202926-5 (Version None)
Quarter: 2009Q2

REPORT INFORMATION
  Report Type: 
  Country: None (occurrence: None)
  Receive Date: 20090520
  Receipt Date: 20090507
  Transmission Date: 20091009
  Serious: Yes (Hospitalization)
  Sender: FDA-Public Use
  Company Number: 269087

PATIENT
  Age: 42 Year
  Sex: Female
  Weight: 154.5 kg

DRUGS (5)
  1. PACLITAXEL [Suspect]
     Indication: OVARIAN CANCER
     Dosage: 282 MG, EVERY 3 WEEKS, INTRAVENOUS
     Route: 042
     Dates: start: 20090410, end: 20090501
  2. ALPRAZOLAM [Concomitant]
  3. SENNA [Concomitant]
  4. IRON [Concomitant]
  5. PARACETAMOL [Concomitant]

REACTIONS (3)
  - FLUID INTAKE REDUCED [None]
  - LOSS OF CONSCIOUSNESS [None]
  - PRESYNCOPE [None]
